FAERS Safety Report 19055584 (Version 1)
Quarter: 2021Q1

REPORT INFORMATION
  Report Type: Spontaneous
  Country: US (occurrence: US)
  Receive Date: 20210324
  Receipt Date: 20210324
  Transmission Date: 20210420
  Serious: Yes (Life-Threatening)
  Sender: FDA-Public Use
  Company Number: None

PATIENT
  Age: 93 Year
  Sex: Male
  Weight: 80 kg

DRUGS (1)
  1. TENECTEPLASE [Suspect]
     Active Substance: TENECTEPLASE
     Indication: CEREBROVASCULAR ACCIDENT
     Dosage: ?          OTHER FREQUENCY:ONCE;?
     Route: 040
     Dates: start: 20210324, end: 20210324

REACTIONS (4)
  - Cerebral haemorrhage [None]
  - Subarachnoid haemorrhage [None]
  - Cerebrovascular accident [None]
  - Cerebral infarction [None]

NARRATIVE: CASE EVENT DATE: 20210324
